FAERS Safety Report 22020474 (Version 1)
Quarter: 2023Q1

REPORT INFORMATION
  Report Type: Spontaneous
  Country: US (occurrence: US)
  Receive Date: 20230222
  Receipt Date: 20230222
  Transmission Date: 20230418
  Serious: Yes (Other)
  Sender: FDA-Public Use
  Company Number: US-BAYER-2023A017736

PATIENT
  Age: 52 Year
  Sex: Female
  Weight: 91.6 kg

DRUGS (20)
  1. KERENDIA [Suspect]
     Active Substance: FINERENONE
  2. KORLYM [Suspect]
     Active Substance: MIFEPRISTONE
     Indication: Cushing^s syndrome
     Dosage: 300 MG, QD
     Route: 048
     Dates: start: 20221213, end: 20221226
  3. KORLYM [Suspect]
     Active Substance: MIFEPRISTONE
     Indication: Cushing^s syndrome
     Dosage: 600 MG, QD
     Dates: start: 20221227, end: 20230127
  4. METOPROLOL [Suspect]
     Active Substance: METOPROLOL
     Indication: Product used for unknown indication
  5. EDARBI [Concomitant]
     Active Substance: AZILSARTAN KAMEDOXOMIL
  6. EDARBYCLOR [Concomitant]
     Active Substance: AZILSARTAN KAMEDOXOMIL\CHLORTHALIDONE
  7. FOLINIC PLUS [Concomitant]
  8. GABAPENTIN [Concomitant]
     Active Substance: GABAPENTIN
  9. INSULIN LISPRO [Concomitant]
     Active Substance: INSULIN LISPRO
  10. METRONIDAZOLE [Concomitant]
     Active Substance: METRONIDAZOLE
  11. NOVOLOG [Concomitant]
     Active Substance: INSULIN ASPART
  12. OXYCODONE/APAP [Concomitant]
     Active Substance: ACETAMINOPHEN\OXYCODONE HYDROCHLORIDE
  13. OZEMPIC [Concomitant]
     Active Substance: SEMAGLUTIDE
  14. PRO FE [Concomitant]
  15. RIZATRIPTAN [Concomitant]
     Active Substance: RIZATRIPTAN
  16. ROSUVASTATIN [Concomitant]
     Active Substance: ROSUVASTATIN
  17. TIZANIDINE [Concomitant]
     Active Substance: TIZANIDINE
  18. TOPIRAMATE [Concomitant]
     Active Substance: TOPIRAMATE
  19. VASCEPA [Concomitant]
     Active Substance: ICOSAPENT ETHYL
  20. VITAMIN D NOS [Concomitant]
     Active Substance: VITAMIN D NOS

REACTIONS (23)
  - Glomerular filtration rate decreased [Recovering/Resolving]
  - Blood creatine increased [Recovering/Resolving]
  - Blood glucose increased [Not Recovered/Not Resolved]
  - Influenza [None]
  - Hypotension [None]
  - Chest pain [Recovered/Resolved]
  - Weight increased [Not Recovered/Not Resolved]
  - Spinal pain [Not Recovered/Not Resolved]
  - Joint swelling [None]
  - Breast pain [Not Recovered/Not Resolved]
  - Headache [None]
  - Blood pressure increased [None]
  - Pain in extremity [None]
  - Swelling [Not Recovered/Not Resolved]
  - Arthralgia [Not Recovered/Not Resolved]
  - Nausea [Not Recovered/Not Resolved]
  - Vomiting [None]
  - Oedema peripheral [None]
  - Fatigue [Not Recovered/Not Resolved]
  - Dizziness [None]
  - Constipation [Not Recovered/Not Resolved]
  - Malaise [Recovering/Resolving]
  - Dyspnoea [None]

NARRATIVE: CASE EVENT DATE: 20221201
